FAERS Safety Report 9944370 (Version 1)
Quarter: 2014Q1

REPORT INFORMATION
  Report Type: Report from Study
  Country: US (occurrence: US)
  Receive Date: 20140303
  Receipt Date: 20140303
  Transmission Date: 20141002
  Serious: No
  Sender: FDA-Public Use
  Company Number: US-ABBVIE-13P-163-1055835-00

PATIENT
  Age: 29 Year
  Sex: Female

DRUGS (6)
  1. HUMIRA [Suspect]
     Indication: COLITIS ULCERATIVE
     Route: 058
     Dates: start: 201112
  2. ASACOL [Concomitant]
     Indication: COLITIS ULCERATIVE
  3. DEPO-PROVERA [Concomitant]
     Indication: CONTRACEPTION
     Dosage: SHOTS
  4. FERROUS GLUCONATE [Concomitant]
     Indication: ANAEMIA
  5. ALBUTEROL [Concomitant]
     Indication: ASTHMA
     Dosage: INHALER
  6. ALBUTEROL [Concomitant]
     Indication: ASTHMA
     Dosage: PER NEBULIZER

REACTIONS (1)
  - Injection site pain [Recovered/Resolved]
